FAERS Safety Report 24275494 (Version 2)
Quarter: 2024Q4

REPORT INFORMATION
  Report Type: Spontaneous
  Country: US (occurrence: US)
  Receive Date: 20240903
  Receipt Date: 20241002
  Transmission Date: 20250114
  Serious: No
  Sender: LUPIN
  Company Number: US-LUPIN PHARMACEUTICALS INC.-2024-08113

PATIENT

DRUGS (1)
  1. TESTOSTERONE GEL 1.62% [Suspect]
     Active Substance: TESTOSTERONE
     Indication: Product used for unknown indication
     Dosage: UNK, 1 PUMP A DAY AFTER TAKING SHOWER
     Route: 065

REACTIONS (5)
  - Fatigue [Unknown]
  - Loss of libido [Unknown]
  - Device delivery system issue [Unknown]
  - Product storage error [Unknown]
  - Drug dose omission by device [Unknown]
